FAERS Safety Report 23712266 (Version 1)
Quarter: 2024Q2

REPORT INFORMATION
  Report Type: Spontaneous
  Country: US (occurrence: None)
  Receive Date: 20240405
  Receipt Date: 20240405
  Transmission Date: 20240716
  Serious: No
  Sender: FDA-Public Use
  Company Number: US-Axsome Therapeutics, Inc.-AXS202311-001509

PATIENT
  Sex: Male

DRUGS (3)
  1. SUNOSI [Suspect]
     Active Substance: SOLRIAMFETOL
     Indication: Product used for unknown indication
     Route: 065
     Dates: start: 2023
  2. SUNOSI [Suspect]
     Active Substance: SOLRIAMFETOL
     Route: 065
  3. SUNOSI [Suspect]
     Active Substance: SOLRIAMFETOL
     Route: 065

REACTIONS (2)
  - Headache [Unknown]
  - Intentional dose omission [Unknown]

NARRATIVE: CASE EVENT DATE: 20230101
